FAERS Safety Report 5169123-6 (Version None)
Quarter: 2006Q4

REPORT INFORMATION
  Report Type: 
  Country: None (occurrence: None)
  Receive Date: 20061211
  Receipt Date: 20061201
  Transmission Date: 20070319
  Serious: Yes (Other)
  Sender: FDA-Public Use
  Company Number: CH-MERCK-0612CHE00002

PATIENT
  Age: 87 Year
  Sex: Male

DRUGS (5)
  1. PROSCAR [Suspect]
     Indication: BENIGN PROSTATIC HYPERPLASIA
     Route: 048
  2. TAMSULOSIN HYDROCHLORIDE [Suspect]
     Route: 048
  3. TORSEMIDE [Concomitant]
     Route: 048
  4. ASPIRIN AND DIPYRIDAMOLE [Concomitant]
     Route: 048
  5. CLOMETHIAZOLE EDISYLATE [Concomitant]
     Route: 048

REACTIONS (2)
  - ANAEMIA [None]
  - THROMBOCYTOPENIA [None]
